FAERS Safety Report 9760972 (Version 1)
Quarter: 2013Q4

REPORT INFORMATION
  Report Type: Spontaneous
  Country: US (occurrence: US)
  Receive Date: 20131216
  Receipt Date: 20131216
  Transmission Date: 20140711
  Serious: Yes (Other)
  Sender: FDA-Public Use
  Company Number: US-PFIZER INC-2013357691

PATIENT
  Age: 41 Year
  Sex: Female
  Weight: 76.19 kg

DRUGS (6)
  1. LYRICA [Suspect]
     Indication: TRIGEMINAL NEURALGIA
     Dosage: 225 MG (BY TAKING 3 CAPSULES OF 75MG), 2X/DAY
     Route: 048
     Dates: start: 201108
  2. TOPAMAX [Concomitant]
     Dosage: UNK
  3. ELAVIL [Concomitant]
     Dosage: UNK
  4. PRAVASTATIN [Concomitant]
     Dosage: UNK
  5. PLAVIX [Concomitant]
     Dosage: UNK
  6. ASPIRIN [Concomitant]
     Dosage: 81 MG, 1X/DAY

REACTIONS (2)
  - Myocardial infarction [Unknown]
  - Cardiac disorder [Unknown]
